FAERS Safety Report 6059593-3 (Version None)
Quarter: 2009Q1

REPORT INFORMATION
  Report Type: 
  Country: None (occurrence: None)
  Receive Date: 20090127
  Receipt Date: 20090127
  Transmission Date: 20090719
  Serious: Yes (Hospitalization)
  Sender: FDA-Public Use
  Company Number: None

PATIENT
  Age: 79 Year
  Sex: Male

DRUGS (2)
  1. WARFARIN SODIUM [Suspect]
     Indication: ATRIAL FIBRILLATION
     Dosage: 7.5MG 5 DAYS PER WEEK PO UNKNOWN TO 8/16
     Route: 048
     Dates: end: 20080816
  2. ENOXAPARIN SODIUM [Suspect]
     Indication: ATRIAL FIBRILLATION
     Dosage: 130MG X 2 DOSES SQ
     Dates: start: 20080818, end: 20080819

REACTIONS (12)
  - ATRIAL FIBRILLATION [None]
  - CHEST PAIN [None]
  - CHOLECYSTITIS ACUTE [None]
  - HEPATIC HAEMORRHAGE [None]
  - HYPERTENSION [None]
  - HYPERTHERMIA [None]
  - HYPOTENSION [None]
  - LACTIC ACIDOSIS [None]
  - MULTI-ORGAN FAILURE [None]
  - POST PROCEDURAL COMPLICATION [None]
  - SHOCK HAEMORRHAGIC [None]
  - TACHYCARDIA [None]
